FAERS Safety Report 4483733-0 (Version None)
Quarter: 2004Q4

REPORT INFORMATION
  Report Type: 
  Country: None (occurrence: None)
  Receive Date: 20041022
  Receipt Date: 20041022
  Transmission Date: 20050328
  Serious: No
  Sender: FDA-Public Use
  Company Number: None

PATIENT
  Sex: Male

DRUGS (2)
  1. LODINE XL [Suspect]
     Dosage: 500 MG PO BID
     Route: 048
  2. CARDURA [Suspect]
     Dosage: 8 MG PO QD
     Route: 048

REACTIONS (6)
  - ABDOMINAL PAIN [None]
  - DRUG INEFFECTIVE [None]
  - NAUSEA [None]
  - PHARMACEUTICAL PRODUCT COMPLAINT [None]
  - POLLAKIURIA [None]
  - VOMITING [None]
